FAERS Safety Report 4594959-X (Version None)
Quarter: 2005Q1

REPORT INFORMATION
  Report Type: 
  Country: None (occurrence: None)
  Receive Date: 20050224
  Receipt Date: 20031027
  Transmission Date: 20050727
  Serious: Yes (Other)
  Sender: FDA-Public Use
  Company Number: GXKR2003GB00631

PATIENT
  Age: 62 Year
  Sex: Female

DRUGS (1)
  1. TRIMETHOPRIM [Suspect]
     Dosage: ORAL
     Route: 048
     Dates: start: 20031007, end: 20031014

REACTIONS (3)
  - EYELID OEDEMA [None]
  - RASH GENERALISED [None]
  - RASH MACULAR [None]
